FAERS Safety Report 7019510-6 (Version None)
Quarter: 2010Q3

REPORT INFORMATION
  Report Type: 
  Country: None (occurrence: None)
  Receive Date: 20100923
  Receipt Date: 20090821
  Transmission Date: 20110219
  Serious: Yes (Other)
  Sender: FDA-Public Use
  Company Number: 697535

PATIENT
  Sex: Male

DRUGS (2)
  1. (PAMIDRONIC ACID) [Suspect]
     Indication: PRODUCT USED FOR UNKNOWN INDICATION
  2. VELCADE [Suspect]
     Indication: PRODUCT USED FOR UNKNOWN INDICATION

REACTIONS (4)
  - DEPRESSIVE SYMPTOM [None]
  - DRUG INTERACTION [None]
  - FATIGUE [None]
  - NAUSEA [None]
